FAERS Safety Report 5751147-9 (Version None)
Quarter: 2008Q2

REPORT INFORMATION
  Report Type: 
  Country: None (occurrence: None)
  Receive Date: 20080523
  Receipt Date: 20070531
  Transmission Date: 20081010
  Serious: Yes (Other)
  Sender: FDA-Public Use
  Company Number: E2090-00248-SPO-US

PATIENT
  Age: 23 Year
  Sex: Female

DRUGS (5)
  1. ZONEGRAN [Suspect]
     Indication: SIMPLE PARTIAL SEIZURES
     Dosage: 150 MG UP TITRATION TO 600 MG DAILY, ORAL; 600 MG, ORAL
     Route: 048
     Dates: start: 20040601, end: 20061001
  2. ZONEGRAN [Suspect]
     Indication: SIMPLE PARTIAL SEIZURES
     Dosage: 150 MG UP TITRATION TO 600 MG DAILY, ORAL; 600 MG, ORAL
     Route: 048
     Dates: start: 20061001, end: 20070601
  3. CLONAZEPAM [Concomitant]
  4. FOLIC ACID [Concomitant]
  5. MULTIVITAMIN [Concomitant]

REACTIONS (2)
  - CONVULSION [None]
  - DRUG INEFFECTIVE [None]
